FAERS Safety Report 5567867-5 (Version None)
Quarter: 2007Q4

REPORT INFORMATION
  Report Type: 
  Country: None (occurrence: None)
  Receive Date: 20071220
  Receipt Date: 20071210
  Transmission Date: 20080405
  Serious: Yes (Other)
  Sender: FDA-Public Use
  Company Number: JP-ELI_LILLY_AND_COMPANY-JP200712002854

PATIENT
  Age: 65 Year

DRUGS (1)
  1. ZYPREXA [Suspect]
     Indication: PSYCHOTIC DISORDER
     Dosage: 15 MG, DAILY (1/D)
     Route: 048

REACTIONS (1)
  - PNEUMONIA ASPIRATION [None]
